FAERS Safety Report 9963949 (Version 2)
Quarter: 2014Q1

REPORT INFORMATION
  Report Type: Spontaneous
  Country: DK (occurrence: JP)
  Receive Date: 20140305
  Receipt Date: 20140320
  Transmission Date: 20141002
  Serious: Yes (Hospitalization)
  Sender: FDA-Public Use
  Company Number: JP-FRI-1000060237

PATIENT
  Age: 83 Year
  Sex: Female

DRUGS (4)
  1. LEXAPRO [Suspect]
     Indication: DEPRESSION
     Dosage: 10 MG
     Route: 048
     Dates: start: 20131225, end: 20140207
  2. ARICEPT [Suspect]
     Indication: DEMENTIA ALZHEIMER^S TYPE
     Dosage: 3 MG
     Route: 048
     Dates: start: 20131228, end: 20140118
  3. ARICEPT [Suspect]
     Dosage: 5 MG
     Route: 048
     Dates: start: 20140119
  4. LOTRIGA [Concomitant]
     Indication: HYPERLIPIDAEMIA
     Dosage: 2 GRAM
     Route: 048
     Dates: start: 20131228

REACTIONS (1)
  - Altered state of consciousness [Recovered/Resolved]
